FAERS Safety Report 10182465 (Version 7)
Quarter: 2014Q3

REPORT INFORMATION
  Report Type: Spontaneous
  Country: DE (occurrence: DE)
  Receive Date: 20140520
  Receipt Date: 20140818
  Transmission Date: 20150326
  Serious: Yes (Death, Hospitalization)
  Sender: FDA-Public Use
  Company Number: DE-JNJFOC-20140509087

PATIENT
  Age: 55 Year
  Sex: Male

DRUGS (6)
  1. XARELTO [Suspect]
     Active Substance: RIVAROXABAN
     Indication: PULMONARY HYPERTENSION
     Route: 048
  2. ADEMPAS [Suspect]
     Active Substance: RIOCIGUAT
     Indication: PULMONARY HYPERTENSION
     Route: 048
     Dates: start: 201404, end: 20140507
  3. XARELTO [Suspect]
     Active Substance: RIVAROXABAN
     Indication: ANTICOAGULANT THERAPY
     Route: 048
  4. SPIRONOLACTONE. [Concomitant]
     Active Substance: SPIRONOLACTONE
     Indication: PULMONARY HYPERTENSION
     Route: 065
  5. IRENAT [Concomitant]
     Active Substance: POTASSIUM PERCHLORATE
     Route: 065
  6. TOREM [Concomitant]
     Active Substance: TORSEMIDE
     Indication: PULMONARY HYPERTENSION
     Route: 048

REACTIONS (9)
  - Haematochezia [Unknown]
  - Haemoptysis [Unknown]
  - Haemorrhagic diathesis [Unknown]
  - Cardiac failure [Fatal]
  - Lower gastrointestinal haemorrhage [Unknown]
  - Thrombocytopenia [Fatal]
  - Hyponatraemia [Unknown]
  - Pulmonary haemorrhage [Fatal]
  - Epistaxis [Unknown]

NARRATIVE: CASE EVENT DATE: 20140506
